FAERS Safety Report 6826461-6 (Version None)
Quarter: 2010Q3

REPORT INFORMATION
  Report Type: 
  Country: None (occurrence: None)
  Receive Date: 20100709
  Receipt Date: 20100614
  Transmission Date: 20110219
  Serious: No
  Sender: FDA-Public Use
  Company Number: US-BAYER-201022372NA

PATIENT
  Age: 51 Year
  Sex: Female
  Weight: 73 kg

DRUGS (3)
  1. MAGNEVIST [Suspect]
     Indication: NUCLEAR MAGNETIC RESONANCE IMAGING
     Dosage: TOTAL DAILY DOSE: 16 ML  UNIT DOSE: 20 ML
     Route: 042
     Dates: start: 20100430, end: 20100430
  2. PAXIL CR [Concomitant]
  3. LIPITOR [Concomitant]
     Dosage: TOTAL DAILY DOSE: 20 MG

REACTIONS (4)
  - ERYTHEMA [None]
  - OEDEMA PERIPHERAL [None]
  - PAIN IN EXTREMITY [None]
  - PHLEBITIS [None]
